FAERS Safety Report 4395595-0 (Version None)
Quarter: 2004Q3

REPORT INFORMATION
  Report Type: 
  Country: None (occurrence: None)
  Receive Date: 20040712
  Receipt Date: 20040712
  Transmission Date: 20050211
  Serious: Yes (Other)
  Sender: FDA-Public Use
  Company Number: None

PATIENT
  Sex: Female
  Weight: 23.1334 kg

DRUGS (3)
  1. BICILLIN L-A [Suspect]
     Indication: SCARLET FEVER
     Dosage: 1.2 MIL UNITS IM [1 DOSE ONLY]
     Route: 030
     Dates: start: 20040623
  2. ROCEPHIN [Concomitant]
  3. BICILLIN L-A [Concomitant]

REACTIONS (4)
  - INJECTION SITE ERYTHEMA [None]
  - INJECTION SITE INDURATION [None]
  - INJECTION SITE PAIN [None]
  - INJECTION SITE WARMTH [None]
